FAERS Safety Report 10271486 (Version 1)
Quarter: 2014Q3

REPORT INFORMATION
  Report Type: Spontaneous
  Country: DE (occurrence: DE)
  Receive Date: 20140701
  Receipt Date: 20140701
  Transmission Date: 20150326
  Serious: Yes (Congenital Anomaly, Other)
  Sender: FDA-Public Use
  Company Number: DE-TEVA-490342GER

PATIENT
  Age: 1 Day
  Sex: Male

DRUGS (6)
  1. L-THYROXIN 100 [Concomitant]
     Route: 064
  2. FOLIO FORTE [Concomitant]
     Active Substance: FOLIC ACID\VITAMINS
     Route: 064
  3. OMEPRAZOL [Concomitant]
     Active Substance: OMEPRAZOLE
     Route: 064
  4. CITALOPRAM [Suspect]
     Active Substance: CITALOPRAM HYDROBROMIDE
     Route: 064
  5. RENNIE [Concomitant]
     Active Substance: MAGNESIUM CARBONATE
     Route: 064
  6. IBUPROFEN LYSINATE [Concomitant]
     Active Substance: IBUPROFEN
     Route: 064

REACTIONS (2)
  - Hypospadias [Not Recovered/Not Resolved]
  - Small for dates baby [Recovering/Resolving]

NARRATIVE: CASE EVENT DATE: 20140127
